FAERS Safety Report 6268056-1 (Version None)
Quarter: 2009Q3

REPORT INFORMATION
  Report Type: 
  Country: None (occurrence: None)
  Receive Date: 20090713
  Receipt Date: 20090626
  Transmission Date: 20100115
  Serious: Yes (Hospitalization)
  Sender: FDA-Public Use
  Company Number: IT-1170191

PATIENT
  Age: 3 Year
  Sex: Male

DRUGS (1)
  1. PATANOL [Suspect]
     Indication: CONJUNCTIVITIS
     Dosage: OPHTHALMIC
     Route: 047
     Dates: start: 20090510, end: 20090517

REACTIONS (1)
  - CORNEAL OEDEMA [None]
